FAERS Safety Report 9283570 (Version 1)
Quarter: 2013Q2

REPORT INFORMATION
  Report Type: Spontaneous
  Country: ES (occurrence: None)
  Receive Date: 20130506
  Receipt Date: 20130506
  Transmission Date: 20140414
  Serious: Yes (Hospitalization)
  Sender: FDA-Public Use
  Company Number: DSM-2013-00436

PATIENT
  Age: 76 Year
  Sex: Female

DRUGS (6)
  1. BALZAK PLUS [Suspect]
     Indication: HYPERTENSION
     Dosage: 40/10 MG (1 IN 1 D) ORAL
     Route: 048
     Dates: start: 201007, end: 20120825
  2. METHOTREXATE (METHOTREXATE) (INJECTION) (METHOTREXATE) [Suspect]
     Indication: RHEUMATOID ARTHRITIS
     Route: 030
     Dates: start: 201203, end: 20120825
  3. TROMALYT (ACETYLSALICYLIC ACID) (PROLONGED-RELEASE CAPSULES) (ACETYLSALICYLIC ACID) [Suspect]
     Indication: PROPHYLAXIS
     Route: 048
     Dates: start: 200705
  4. ATORVASTATIN (ATORVASTATIN) (ATORVASTATIN) [Concomitant]
  5. COROPRES (CARVEDILOL) (TABLET) (CARVEDILOL) [Concomitant]
  6. DACORTIN (PREDNISONE) (TABLET) (PREDNISONE) [Concomitant]

REACTIONS (4)
  - Renal failure acute [None]
  - Abdominal pain [None]
  - Nausea [None]
  - Vomiting [None]
